FAERS Safety Report 4839270-4 (Version None)
Quarter: 2005Q4

REPORT INFORMATION
  Report Type: 
  Country: None (occurrence: None)
  Receive Date: 20051129
  Receipt Date: 20041103
  Transmission Date: 20060501
  Serious: No
  Sender: FDA-Public Use
  Company Number: US-GLAXOSMITHKLINE-A0532539A

PATIENT
  Age: 47 Year
  Sex: Female

DRUGS (2)
  1. WELLBUTRIN SR [Suspect]
     Dosage: 150MG TWICE PER DAY
     Route: 048
     Dates: start: 20040901
  2. RESTORIL [Concomitant]

REACTIONS (5)
  - AGITATION [None]
  - DIZZINESS [None]
  - INSOMNIA [None]
  - NAUSEA [None]
  - PRURITUS [None]
